FAERS Safety Report 8301478-3 (Version None)
Quarter: 2012Q2

REPORT INFORMATION
  Report Type: 
  Country: None (occurrence: None)
  Receive Date: 20120420
  Receipt Date: 20120413
  Transmission Date: 20120825
  Serious: Yes (Other)
  Sender: FDA-Public Use
  Company Number: PHHY2012BR031905

PATIENT
  Age: 73 Year
  Sex: Male

DRUGS (1)
  1. METFORMIN HCL [Suspect]
     Indication: DIABETES MELLITUS
     Dosage: 1 DF, BID
     Route: 048

REACTIONS (5)
  - DRUG INEFFECTIVE [None]
  - POOR PERIPHERAL CIRCULATION [None]
  - NEUROPATHY PERIPHERAL [None]
  - BLOOD GLUCOSE INCREASED [None]
  - INFLAMMATION [None]
